FAERS Safety Report 12999744 (Version 1)
Quarter: 2016Q4

REPORT INFORMATION
  Report Type: Spontaneous
  Country: US (occurrence: US)
  Receive Date: 20161205
  Receipt Date: 20161205
  Transmission Date: 20170207
  Serious: No
  Sender: FDA-Public Use
  Company Number: US-FRI-1000085801

PATIENT
  Age: 23 Year
  Sex: Female

DRUGS (2)
  1. TEFLARO [Suspect]
     Active Substance: CEFTAROLINE FOSAMIL
     Indication: ENDOCARDITIS
     Dosage: UNK
     Route: 042
  2. TEFLARO [Suspect]
     Active Substance: CEFTAROLINE FOSAMIL
     Indication: ARTHRITIS BACTERIAL

REACTIONS (2)
  - Off label use [Unknown]
  - Liver function test increased [Unknown]
